FAERS Safety Report 10086192 (Version 1)
Quarter: 2014Q2

REPORT INFORMATION
  Report Type: Spontaneous
  Country: US (occurrence: None)
  Receive Date: 20140417
  Receipt Date: 20140417
  Transmission Date: 20141212
  Serious: Yes (Other)
  Sender: FDA-Public Use
  Company Number: None

PATIENT
  Age: 58 Year
  Sex: Female

DRUGS (7)
  1. AFINITOR [Suspect]
     Indication: PANCREATIC CARCINOMA
     Route: 048
     Dates: start: 20130518, end: 20140413
  2. AMBIEN [Concomitant]
  3. DRAMAMINE [Concomitant]
  4. ALPRAZOLAM [Concomitant]
  5. OXYCODONE [Concomitant]
  6. CYCLOBENZAPRINE [Concomitant]
  7. VITAMINS [Concomitant]

REACTIONS (1)
  - Drug ineffective [None]
